FAERS Safety Report 13970523 (Version 1)
Quarter: 2017Q3

REPORT INFORMATION
  Report Type: Spontaneous
  Country: US (occurrence: US)
  Receive Date: 20170914
  Receipt Date: 20170914
  Transmission Date: 20171128
  Serious: No
  Sender: FDA-Public Use
  Company Number: US-BEH-2017083547

PATIENT
  Age: 26 Year
  Sex: Female

DRUGS (1)
  1. RHOPHYLAC [Suspect]
     Active Substance: HUMAN RHO(D) IMMUNE GLOBULIN
     Indication: PROPHYLAXIS AGAINST RH ISOIMMUNISATION
     Dosage: 1300 IU, TOT
     Route: 030

REACTIONS (1)
  - Rhesus antibodies positive [Recovered/Resolved with Sequelae]

NARRATIVE: CASE EVENT DATE: 20170819
